FAERS Safety Report 16254673 (Version 1)
Quarter: 2019Q2

REPORT INFORMATION
  Report Type: Spontaneous
  Country: NL (occurrence: NL)
  Receive Date: 20190430
  Receipt Date: 20190430
  Transmission Date: 20190711
  Serious: Yes (Other)
  Sender: FDA-Public Use
  Company Number: NL-LUPIN PHARMACEUTICALS INC.-2019-02591

PATIENT
  Age: 41 Year
  Sex: Male

DRUGS (9)
  1. OXYCODONE [Interacting]
     Active Substance: OXYCODONE
     Dosage: 3 MILLIGRAM, TID, OXYCODONE- IR
     Route: 065
  2. PARACETAMOL [Concomitant]
     Active Substance: ACETAMINOPHEN
     Indication: PAIN
     Dosage: 1000 MILLIGRAM
     Route: 065
  3. IBUPROFEN. [Concomitant]
     Active Substance: IBUPROFEN
     Indication: PAIN
     Dosage: 200 MILLIGRAM, QID
     Route: 065
  4. OXYCODONE [Suspect]
     Active Substance: OXYCODONE
     Indication: PAIN
     Dosage: 5 MILLIGRAM, TID, OXYCODONE- IR
     Route: 065
  5. DRONABINOL. [Interacting]
     Active Substance: DRONABINOL
     Dosage: 1.95 MILLIGRAM, QID
     Route: 060
  6. CANNABIDIOL [Interacting]
     Active Substance: CANNABIDIOL
     Indication: PAIN
     Dosage: 20 MILLIGRAM PER MILLILITRE
     Route: 060
  7. CANNABIDIOL [Interacting]
     Active Substance: CANNABIDIOL
     Dosage: 3 MILLIGRAM, QID
     Route: 060
  8. DRONABINOL. [Interacting]
     Active Substance: DRONABINOL
     Indication: PAIN
     Dosage: 13 MILLIGRAM PER MILLILITRE
     Route: 060
  9. MORPHINE [Concomitant]
     Active Substance: MORPHINE
     Indication: PAIN
     Dosage: 5 MG PER GRAM, QD
     Route: 061

REACTIONS (3)
  - Drug interaction [Recovering/Resolving]
  - Time perception altered [Recovering/Resolving]
  - Neurological symptom [Recovering/Resolving]
